FAERS Safety Report 4384627-1 (Version None)
Quarter: 2004Q2

REPORT INFORMATION
  Report Type: 
  Country: None (occurrence: None)
  Receive Date: 20040625
  Receipt Date: 20030908
  Transmission Date: 20050107
  Serious: No
  Sender: FDA-Public Use
  Company Number: US-BRISTOL-MYERS SQUIBB COMPANY-12376760

PATIENT
  Age: 69 Year
  Sex: Female
  Weight: 63 kg

DRUGS (10)
  1. SINEMET CR [Suspect]
     Indication: RESTLESS LEGS SYNDROME
     Dosage: 50/200MG, 0.5 TAB 3X'S DAY FOR AT ^LEAST 6 YEARS^.
     Route: 048
     Dates: start: 19930101, end: 20030907
  2. SINEMET CR [Suspect]
     Indication: RESTLESS LEGS SYNDROME
     Route: 048
     Dates: start: 20030908
  3. FAMOTIDINE [Suspect]
     Indication: HYPERCHLORHYDRIA
     Dosage: THERAPY WAS STOPPED ON 03-SEP-2003, THEN RESTARTED THERAPY ^40^ ON 15-SEP-03
     Dates: start: 20030826
  4. PROTONIX [Suspect]
     Indication: HYPERCHLORHYDRIA
     Dosage: STARTED ^4 DAYS AGO^
     Dates: start: 20030904, end: 20030914
  5. NAPROXEN [Concomitant]
     Indication: ARTHRITIS
     Dates: end: 20030819
  6. PROZAC [Concomitant]
     Dosage: INITIALLY 2 PER DAY, THEN AS NEEDED USUALLY 2 PER WEEK
  7. VICODIN [Concomitant]
     Dosage: ^5/500^ AS NEEDED, PT WAS USING 2 + 1/2 TABS/DAY,NOW TAKES 2 TABS QD (1/2 TAB QID)
  8. PERMAX [Concomitant]
     Indication: RESTLESS LEGS SYNDROME
     Dates: start: 19930101
  9. DOCUSATE SODIUM [Concomitant]
  10. COUMADIN [Concomitant]
     Dates: end: 20030819

REACTIONS (5)
  - BACK PAIN [None]
  - CHEST PAIN [None]
  - DRUG INEFFECTIVE [None]
  - NAUSEA [None]
  - VOMITING [None]
